FAERS Safety Report 5602035-X (Version None)
Quarter: 2008Q1

REPORT INFORMATION
  Report Type: 
  Country: None (occurrence: None)
  Receive Date: 20080122
  Receipt Date: 20080122
  Transmission Date: 20080703
  Serious: Yes (Death)
  Sender: FDA-Public Use
  Company Number: None

PATIENT
  Age: 56 Year
  Sex: Female
  Weight: 72 kg

DRUGS (2)
  1. HEPARIN [Suspect]
     Indication: CORONARY ARTERY BYPASS
     Dosage: 20,000 UNITS ONE TIME IV BOLUS
     Route: 040
     Dates: start: 20080116, end: 20080116
  2. HEPARIN [Suspect]

REACTIONS (3)
  - CEREBRAL THROMBOSIS [None]
  - COAGULOPATHY [None]
  - HYPOTENSION [None]
